FAERS Safety Report 7459833-X (Version None)
Quarter: 2011Q2

REPORT INFORMATION
  Report Type: 
  Country: None (occurrence: None)
  Receive Date: 20110505
  Receipt Date: 20110421
  Transmission Date: 20111010
  Serious: Yes (Hospitalization, Other)
  Sender: FDA-Public Use
  Company Number: US-CELGENEUS-163-21880-11021927

PATIENT
  Sex: Male

DRUGS (25)
  1. FOLIC ACID [Concomitant]
     Dosage: 1 MILLIGRAM
     Route: 048
  2. ZOLEDRONATE [Concomitant]
     Dosage: 4 MILLIGRAM
     Route: 051
     Dates: start: 20110321, end: 20110321
  3. REVLIMID [Suspect]
     Indication: MULTIPLE MYELOMA
     Dosage: 25 MILLIGRAM
     Route: 048
     Dates: start: 20101027
  4. CALTRATE-600 + VITAMIN D [Concomitant]
     Dosage: 500 MILLIGRAM
     Route: 048
  5. AMOXICILLIN [Concomitant]
     Dosage: 500 MILLIGRAM
     Route: 048
  6. METOCLOPRAMIDE [Concomitant]
     Dosage: 10 MILLIGRAM
     Route: 065
  7. LUBIPROSTONE [Concomitant]
     Route: 065
  8. MS CONTIN [Concomitant]
     Dosage: 45 MILLIGRAM
     Route: 048
  9. MARINOL [Concomitant]
     Route: 065
  10. CLONIDINE [Concomitant]
     Dosage: .1 MILLIGRAM
     Route: 065
  11. CARISOPRODOL [Concomitant]
     Dosage: 350 MILLIGRAM
     Route: 065
  12. LACTULOSE [Concomitant]
     Route: 065
  13. ZOLEDRONATE [Concomitant]
     Dosage: 4 MILLIGRAM
     Route: 051
     Dates: start: 20110221, end: 20110221
  14. NORTRIPTYLINE [Concomitant]
     Dosage: 25 MILLIGRAM
     Route: 048
  15. METOPROLOL SUCCINATE [Concomitant]
     Dosage: 25 MILLIGRAM
     Route: 065
  16. TAMSULOSIN HCL [Concomitant]
     Dosage: .4 MILLIGRAM
     Route: 048
  17. MORPHINE SULFATE [Concomitant]
     Dosage: 45 MILLIGRAM
     Route: 048
  18. MAGNESIUM OXIDE [Concomitant]
     Dosage: 500 MILLIGRAM
     Route: 048
  19. ZOLEDRONATE [Concomitant]
     Dosage: 4 MILLIGRAM
     Route: 051
     Dates: start: 20110124, end: 20110124
  20. GABAPENTIN [Concomitant]
     Dosage: 900 MILLIGRAM
     Route: 065
  21. LOVAZA [Concomitant]
     Dosage: 1000 MILLIGRAM
     Route: 065
  22. DECADRON [Concomitant]
     Dosage: 40 MILLIGRAM
     Route: 065
  23. PRAVASTATIN [Concomitant]
     Dosage: 20 MILLIGRAM
     Route: 048
  24. VITAMIN D [Concomitant]
     Dosage: 400 IU (INTERNATIONAL UNIT)
     Route: 065
  25. REMERON [Concomitant]
     Dosage: 30 MILLIGRAM
     Route: 065

REACTIONS (6)
  - NAUSEA [None]
  - DECREASED APPETITE [None]
  - CONSTIPATION [None]
  - WEIGHT DECREASED [None]
  - PAIN [None]
  - SKIN HAEMORRHAGE [None]
